FAERS Safety Report 9485875 (Version 1)
Quarter: 2013Q3

REPORT INFORMATION
  Report Type: Spontaneous
  Country: US (occurrence: None)
  Receive Date: 20130827
  Receipt Date: 20130827
  Transmission Date: 20140515
  Serious: Yes (Life-Threatening, Hospitalization)
  Sender: FDA-Public Use
  Company Number: None

PATIENT
  Age: 62 Year
  Sex: Male
  Weight: 86.2 kg

DRUGS (1)
  1. FENTANYL [Suspect]
     Indication: VENTRICULAR FIBRILLATION
     Dosage: 250 MG  ONCE IV
     Route: 042
     Dates: start: 20130424, end: 20130424

REACTIONS (3)
  - Ventricular fibrillation [None]
  - Electrocardiogram ST segment elevation [None]
  - Post procedural complication [None]
